FAERS Safety Report 20570306 (Version 5)
Quarter: 2023Q2

REPORT INFORMATION
  Report Type: Spontaneous
  Country: US (occurrence: US)
  Receive Date: 20220309
  Receipt Date: 20230418
  Transmission Date: 20230722
  Serious: Yes (Disabling)
  Sender: FDA-Public Use
  Company Number: US-ORGANON-O2203USA000780

PATIENT
  Sex: Female

DRUGS (2)
  1. SINGULAIR [Suspect]
     Active Substance: MONTELUKAST SODIUM
     Indication: Dyspnoea
     Dosage: 10 MILLIGRAM
     Route: 048
     Dates: start: 2012, end: 2021
  2. SINGULAIR [Suspect]
     Active Substance: MONTELUKAST SODIUM
     Dosage: 1 TABLET BY MOUTH AT BEDTIME
     Route: 048

REACTIONS (8)
  - Neuropsychiatric symptoms [Not Recovered/Not Resolved]
  - Essential tremor [Not Recovered/Not Resolved]
  - Respiratory disorder [Unknown]
  - Mobility decreased [Unknown]
  - Depression [Not Recovered/Not Resolved]
  - Amnesia [Not Recovered/Not Resolved]
  - Headache [Not Recovered/Not Resolved]
  - Insomnia [Not Recovered/Not Resolved]

NARRATIVE: CASE EVENT DATE: 20130101
